FAERS Safety Report 24215790 (Version 1)
Quarter: 2024Q3

REPORT INFORMATION
  Report Type: Spontaneous
  Country: US (occurrence: US)
  Receive Date: 20240816
  Receipt Date: 20240816
  Transmission Date: 20241017
  Serious: Yes (Hospitalization, Other)
  Sender: Long Grove Pharmaceuticals
  Company Number: US-Long Grove-000070

PATIENT
  Sex: Male

DRUGS (5)
  1. METHADONE [Suspect]
     Active Substance: METHADONE HYDROCHLORIDE
     Route: 064
  2. CITALOPRAM [Suspect]
     Active Substance: CITALOPRAM\CITALOPRAM HYDROBROMIDE
     Route: 064
  3. QUETIAPINE [Suspect]
     Active Substance: QUETIAPINE
     Route: 064
  4. LEVOTHYROXINE [Suspect]
     Active Substance: LEVOTHYROXINE\LEVOTHYROXINE SODIUM
     Route: 064
  5. URSODIOL [Suspect]
     Active Substance: URSODIOL
     Route: 064

REACTIONS (6)
  - Foetal exposure during pregnancy [Unknown]
  - Hypertonia neonatal [Unknown]
  - Tonic posturing [Unknown]
  - Premature baby [Unknown]
  - Neonatal respiratory distress [Unknown]
  - Drug withdrawal syndrome neonatal [Unknown]
